FAERS Safety Report 7650899-0 (Version None)
Quarter: 2011Q3

REPORT INFORMATION
  Report Type: 
  Country: None (occurrence: None)
  Receive Date: 20110802
  Receipt Date: 20110718
  Transmission Date: 20111222
  Serious: Yes (Other)
  Sender: FDA-Public Use
  Company Number: NL-WATSON-2011-11339

PATIENT
  Age: 75 Year
  Sex: Female

DRUGS (3)
  1. PREDNISONE [Suspect]
     Indication: XANTHOGRANULOMA
     Route: 065
  2. CYCLOSPORINE [Suspect]
     Indication: XANTHOGRANULOMA
     Route: 065
  3. AZATHIOPRINE [Suspect]
     Indication: XANTHOGRANULOMA
     Route: 065

REACTIONS (1)
  - NAUSEA [None]
